FAERS Safety Report 10010667 (Version 1)
Quarter: 2014Q1

REPORT INFORMATION
  Report Type: Spontaneous
  Country: US (occurrence: US)
  Receive Date: 20140314
  Receipt Date: 20140314
  Transmission Date: 20141002
  Serious: Yes (Hospitalization, Other)
  Sender: FDA-Public Use
  Company Number: US-AMGEN-USASP2014017557

PATIENT
  Age: 38 Year
  Sex: Male

DRUGS (1)
  1. ENBREL [Suspect]
     Indication: PSORIASIS
     Dosage: 50 MG, QWK, + 50 MG EVERY OTHER WEDNESDAY
     Route: 065
     Dates: start: 2010

REACTIONS (2)
  - Diverticulitis [Recovered/Resolved]
  - Hernia [Recovered/Resolved]
